FAERS Safety Report 25800272 (Version 1)
Quarter: 2025Q3

REPORT INFORMATION
  Report Type: Spontaneous
  Country: YE (occurrence: YE)
  Receive Date: 20250915
  Receipt Date: 20250915
  Transmission Date: 20251021
  Serious: Yes (Other)
  Sender: MICRO LABS
  Company Number: YE-862174955-ML2025-04638

PATIENT
  Age: 40 Year
  Sex: Male

DRUGS (2)
  1. DEXAMETHASONE [Suspect]
     Active Substance: DEXAMETHASONE
     Indication: Asthma
     Route: 042
  2. DEXAMETHASONE [Suspect]
     Active Substance: DEXAMETHASONE

REACTIONS (4)
  - Cushing^s syndrome [Unknown]
  - Adrenal insufficiency [Unknown]
  - Hyponatraemia [Unknown]
  - Intentional product misuse [Unknown]
